FAERS Safety Report 23463659 (Version 3)
Quarter: 2024Q2

REPORT INFORMATION
  Report Type: Spontaneous
  Country: US (occurrence: US)
  Receive Date: 20240131
  Receipt Date: 20240423
  Transmission Date: 20240716
  Serious: No
  Sender: FDA-Public Use
  Company Number: US-SA-SAC20240124001263

PATIENT
  Age: 66 Year
  Sex: Female

DRUGS (1)
  1. DUPIXENT [Suspect]
     Active Substance: DUPILUMAB
     Dosage: 300 MG, QOW
     Route: 058

REACTIONS (12)
  - Stress [Unknown]
  - Condition aggravated [Unknown]
  - Dry skin [Unknown]
  - Skin weeping [Unknown]
  - Skin induration [Unknown]
  - Swelling [Recovering/Resolving]
  - Pruritus [Unknown]
  - Skin exfoliation [Unknown]
  - Arthralgia [Unknown]
  - Rash erythematous [Unknown]
  - Rash [Unknown]
  - Eczema [Not Recovered/Not Resolved]
